FAERS Safety Report 16479472 (Version 2)
Quarter: 2019Q3

REPORT INFORMATION
  Report Type: Spontaneous
  Country: US (occurrence: US)
  Receive Date: 20190626
  Receipt Date: 20190723
  Transmission Date: 20191004
  Serious: Yes (Other)
  Sender: FDA-Public Use
  Company Number: US-009507513-1906USA008309

PATIENT
  Age: 83 Year
  Sex: Male

DRUGS (1)
  1. TICE BCG [Suspect]
     Active Substance: BACILLUS CALMETTE-GUERIN SUBSTRAIN TICE LIVE ANTIGEN
     Indication: BLADDER CANCER RECURRENT
     Dosage: AS 3 YEARS MAINTENANCE
     Dates: start: 2013, end: 2016

REACTIONS (3)
  - Product supply issue [Unknown]
  - Product availability issue [Unknown]
  - Bladder cancer recurrent [Unknown]

NARRATIVE: CASE EVENT DATE: 2019
